FAERS Safety Report 8570621-3 (Version None)
Quarter: 2012Q3

REPORT INFORMATION
  Report Type: 
  Country: None (occurrence: None)
  Receive Date: 20120804
  Receipt Date: 20120723
  Transmission Date: 20120928
  Serious: No
  Sender: FDA-Public Use
  Company Number: US-009507513-1207USA008539

PATIENT

DRUGS (18)
  1. QUETIAPINE FUMARATE [Concomitant]
  2. PEGASYS [Suspect]
  3. VITAMINS (UNSPECIFIED) [Concomitant]
  4. GAS-X [Concomitant]
  5. DULCOLAX [Concomitant]
  6. EPIPEN [Concomitant]
  7. VICTRELIS [Suspect]
     Indication: HEPATITIS C
     Dosage: 800 MG, TID
     Dates: start: 20120430
  8. REBETOL [Suspect]
  9. SEROQUEL [Concomitant]
  10. PRILOSEC [Suspect]
  11. NEURONTIN [Concomitant]
  12. WELLBUTRIN [Concomitant]
  13. ASCORBIC ACID [Concomitant]
  14. ALDACTONE INJECTION [Concomitant]
  15. FINASTERIDE [Suspect]
  16. NADOLOL [Concomitant]
  17. VICODIN [Concomitant]
  18. SPIRONOLACT [Concomitant]

REACTIONS (3)
  - ANAEMIA [None]
  - FATIGUE [None]
  - ARTHRALGIA [None]
